FAERS Safety Report 6538812-0 (Version None)
Quarter: 2010Q1

REPORT INFORMATION
  Report Type: 
  Country: None (occurrence: None)
  Receive Date: 20100112
  Receipt Date: 20100105
  Transmission Date: 20100710
  Serious: Yes (Disabling, Other)
  Sender: FDA-Public Use
  Company Number: 2007-157674-NL

PATIENT
  Age: 38 Year
  Sex: Female

DRUGS (3)
  1. IMPLANON [Suspect]
     Indication: CONTRACEPTION
     Dates: start: 20010410, end: 20040405
  2. IMPLANON [Suspect]
     Indication: CONTRACEPTION
     Dates: start: 20040405, end: 20070618
  3. IMPLANON [Suspect]
     Indication: CONTRACEPTION
     Dates: start: 20070417

REACTIONS (5)
  - DYSAESTHESIA [None]
  - IMPAIRED WORK ABILITY [None]
  - NERVE INJURY [None]
  - PAIN [None]
  - SENSORY DISTURBANCE [None]
